FAERS Safety Report 6560184-6 (Version None)
Quarter: 2010Q1

REPORT INFORMATION
  Report Type: 
  Country: None (occurrence: None)
  Receive Date: 20100129
  Receipt Date: 20050124
  Transmission Date: 20100710
  Serious: No
  Sender: FDA-Public Use
  Company Number: US-ALLERGAN-200500670

PATIENT
  Age: 34 Year
  Sex: Male

DRUGS (6)
  1. BOTOX COSMETIC [Suspect]
     Indication: SKIN WRINKLING
     Route: 030
     Dates: start: 20050114
  2. ZINC SUPPLEMENT [Concomitant]
     Indication: MINERAL SUPPLEMENTATION
     Route: 048
  3. MAGNESIUM SUPPLEMENT [Concomitant]
     Indication: MINERAL SUPPLEMENTATION
     Route: 048
  4. POTASSIUM CHLORIDE [Concomitant]
     Indication: MINERAL SUPPLEMENTATION
     Route: 048
  5. XANAX [Concomitant]
     Indication: STRESS
     Dosage: .5MG, BID
     Route: 048
  6. DOXEPIN HCL [Concomitant]
     Indication: DRUG USE FOR UNKNOWN INDICATION
     Dosage: 75MG, QHS
     Route: 048

REACTIONS (11)
  - DRY MOUTH [None]
  - FEELING COLD [None]
  - HOT FLUSH [None]
  - INFLUENZA LIKE ILLNESS [None]
  - INJECTION SITE HAEMATOMA [None]
  - MUSCLE TWITCHING [None]
  - MUSCULAR WEAKNESS [None]
  - NAUSEA [None]
  - PARAESTHESIA [None]
  - TREMOR [None]
  - VISION BLURRED [None]
